FAERS Safety Report 19704616 (Version 2)
Quarter: 2021Q3

REPORT INFORMATION
  Report Type: Report from Study
  Country: CN (occurrence: CN)
  Receive Date: 20210816
  Receipt Date: 20210819
  Transmission Date: 20211014
  Serious: Yes (Other)
  Sender: FDA-Public Use
  Company Number: CN-ASTRAZENECA-2021A675856

PATIENT
  Age: 57 Year
  Sex: Male
  Weight: 90 kg

DRUGS (2)
  1. BYETTA [Suspect]
     Active Substance: EXENATIDE
     Indication: DIABETES MELLITUS
     Route: 058
     Dates: start: 20210801, end: 20210802
  2. DAPAGLIFLOZIN. [Concomitant]
     Active Substance: DAPAGLIFLOZIN
     Indication: DIABETES MELLITUS
     Dosage: 1 TABLET IN THE MORNING, ONCE A DAY
     Route: 048

REACTIONS (4)
  - Abdominal discomfort [Recovered/Resolved]
  - Cardiac discomfort [Recovered/Resolved]
  - Vision blurred [Recovered/Resolved]
  - Heart rate increased [Unknown]

NARRATIVE: CASE EVENT DATE: 20210801
